FAERS Safety Report 7094425-6 (Version None)
Quarter: 2010Q4

REPORT INFORMATION
  Report Type: 
  Country: None (occurrence: None)
  Receive Date: 20101110
  Receipt Date: 20101027
  Transmission Date: 20110411
  Serious: Yes (Other)
  Sender: FDA-Public Use
  Company Number: PHHY2010US72671

PATIENT
  Sex: Female

DRUGS (3)
  1. GENTEAL (NVO) [Suspect]
     Dosage: FOUR TIMES A DAY
     Route: 047
  2. GENTEAL (NVO) [Suspect]
     Dosage: FIVE TIMES A DAY
     Route: 047
  3. GENTEAL GEL (NVO) [Suspect]
     Dosage: ONCE AT NIGHT

REACTIONS (5)
  - CATARACT [None]
  - CATARACT OPERATION [None]
  - EYE IRRITATION [None]
  - INTRAOCULAR LENS IMPLANT [None]
  - SOMNOLENCE [None]
